FAERS Safety Report 5891273-7 (Version None)
Quarter: 2008Q3

REPORT INFORMATION
  Report Type: 
  Country: None (occurrence: None)
  Receive Date: 20080918
  Receipt Date: 20080918
  Transmission Date: 20090109
  Serious: Yes (Hospitalization)
  Sender: FDA-Public Use
  Company Number: None

PATIENT
  Age: 83 Year
  Sex: Female
  Weight: 54.4316 kg

DRUGS (1)
  1. TERBINAFINE HCL [Suspect]
     Indication: ONYCHOMYCOSIS
     Dosage: ONE A DAY
     Dates: start: 20080730, end: 20080811

REACTIONS (7)
  - BACK PAIN [None]
  - BLOOD SODIUM DECREASED [None]
  - ERYTHEMA [None]
  - PAIN [None]
  - PRURITUS [None]
  - TREMOR [None]
  - URTICARIA [None]
